FAERS Safety Report 12696975 (Version 1)
Quarter: 2016Q3

REPORT INFORMATION
  Report Type: Spontaneous
  Country: US (occurrence: None)
  Receive Date: 20160829
  Receipt Date: 20160829
  Transmission Date: 20161109
  Serious: No
  Sender: FDA-Public Use
  Company Number: None

PATIENT
  Age: 50 Year
  Sex: Female
  Weight: 62.14 kg

DRUGS (1)
  1. BOTOX [Suspect]
     Active Substance: ONABOTULINUMTOXINA

REACTIONS (10)
  - Ear pain [None]
  - Abdominal discomfort [None]
  - Vision blurred [None]
  - Headache [None]
  - Blood pressure increased [None]
  - Neck pain [None]
  - Malaise [None]
  - Visual impairment [None]
  - Dysphonia [None]
  - Eyelid ptosis [None]

NARRATIVE: CASE EVENT DATE: 20160801
